FAERS Safety Report 7376228-8 (Version None)
Quarter: 2011Q1

REPORT INFORMATION
  Report Type: 
  Country: None (occurrence: None)
  Receive Date: 20110325
  Receipt Date: 20110316
  Transmission Date: 20110831
  Serious: Yes (Hospitalization)
  Sender: FDA-Public Use
  Company Number: GR-JNJFOC-20110308246

PATIENT
  Age: 57 Year
  Sex: Male

DRUGS (2)
  1. NICORETTE [Suspect]
     Indication: SMOKING CESSATION THERAPY
     Route: 062
  2. NICORETTE [Suspect]
     Route: 062

REACTIONS (10)
  - HYPERSENSITIVITY [None]
  - CONDITION AGGRAVATED [None]
  - PAIN [None]
  - HYPERHIDROSIS [None]
  - PRURITUS GENERALISED [None]
  - RASH GENERALISED [None]
  - VOMITING [None]
  - KOUNIS SYNDROME [None]
  - URTICARIA [None]
  - PERIORBITAL OEDEMA [None]
